FAERS Safety Report 7503233-0 (Version None)
Quarter: 2011Q2

REPORT INFORMATION
  Report Type: 
  Country: None (occurrence: None)
  Receive Date: 20110525
  Receipt Date: 20110512
  Transmission Date: 20111010
  Serious: No
  Sender: FDA-Public Use
  Company Number: US-JNJFOC-20110507382

PATIENT
  Sex: Female
  Weight: 45.36 kg

DRUGS (8)
  1. DURAGESIC-100 [Suspect]
     Indication: FIBROMYALGIA
     Route: 062
     Dates: start: 20051201
  2. FENTANYL CITRATE [Suspect]
     Indication: INTERVERTEBRAL DISC DEGENERATION
     Route: 062
     Dates: end: 20100101
  3. AMITRIPTYLINE HCL [Concomitant]
     Indication: PAIN
     Route: 048
  4. FENTANYL-100 [Suspect]
     Indication: INTERVERTEBRAL DISC DEGENERATION
     Dates: start: 20100101, end: 20100101
  5. AMITRIPTYLINE HCL [Concomitant]
     Indication: SLEEP DISORDER THERAPY
     Route: 048
  6. DURAGESIC-100 [Suspect]
     Indication: INTERVERTEBRAL DISC DEGENERATION
     Route: 062
     Dates: start: 20051201
  7. FENTANYL-100 [Suspect]
     Indication: FIBROMYALGIA
     Dates: start: 20100101, end: 20100101
  8. FENTANYL CITRATE [Suspect]
     Indication: FIBROMYALGIA
     Route: 062
     Dates: end: 20100101

REACTIONS (4)
  - DRUG EFFECT INCREASED [None]
  - PSYCHOMOTOR HYPERACTIVITY [None]
  - DRUG ADMINISTERED AT INAPPROPRIATE SITE [None]
  - MIGRAINE [None]
